FAERS Safety Report 7884355-1 (Version None)
Quarter: 2011Q4

REPORT INFORMATION
  Report Type: 
  Country: None (occurrence: None)
  Receive Date: 20111102
  Receipt Date: 20111028
  Transmission Date: 20120403
  Serious: Yes (Other)
  Sender: FDA-Public Use
  Company Number: DE-PFIZER INC-2011263489

PATIENT
  Age: 59 Year
  Sex: Male

DRUGS (13)
  1. TRACLEER [Concomitant]
     Dosage: UNK
  2. LYRICA [Suspect]
     Indication: POLYNEUROPATHY
     Dosage: 75 MG, UNK
  3. HYDROCHLOROTHIAZID [Concomitant]
     Dosage: UNK
  4. PROBENECID [Concomitant]
     Dosage: UNK
  5. MARCUMAR [Concomitant]
     Dosage: UNK
  6. REVATIO [Suspect]
     Indication: PULMONARY HYPERTENSION
     Dosage: UNK
  7. METFORMIN [Concomitant]
     Dosage: 1000, UNK
  8. TAMSULOSIN [Concomitant]
     Dosage: UNK
  9. PANTOPRAZOLE SODIUM [Concomitant]
     Dosage: UNK
  10. GLIBENCLAMIDE [Concomitant]
     Dosage: UNK
  11. TORASEMIDE [Concomitant]
     Dosage: UNK
  12. PREDNISONE [Concomitant]
     Dosage: UNK
  13. BISOPROLOL [Concomitant]
     Dosage: UNK

REACTIONS (2)
  - DIPLOPIA [None]
  - DRUG EFFECT DECREASED [None]
